FAERS Safety Report 20426647 (Version 1)
Quarter: 2022Q1

REPORT INFORMATION
  Report Type: Spontaneous
  Country: CN (occurrence: None)
  Receive Date: 20220204
  Receipt Date: 20220204
  Transmission Date: 20220423
  Serious: Yes (Hospitalization)
  Sender: FDA-Public Use
  Company Number: CN-ROCHE-3012549

PATIENT
  Age: 68 Year
  Sex: Male

DRUGS (3)
  1. PERJETA [Suspect]
     Active Substance: PERTUZUMAB
     Indication: Colon cancer
     Dosage: ON 29 OCT 2021, NOVEMBER 19, DECEMBER 10 AND DECEMBER 31 2021
     Route: 041
     Dates: start: 20211029, end: 20211231
  2. HERCEPTIN [Suspect]
     Active Substance: TRASTUZUMAB
     Indication: Colon cancer
     Dosage: ON 29 OCT 2021, NOVEMBER 19, DECEMBER 10 AND DECEMBER 31 2021
     Route: 041
     Dates: start: 20211029, end: 20211231
  3. SODIUM CHLORIDE [Concomitant]
     Active Substance: SODIUM CHLORIDE
     Route: 041
     Dates: start: 20211029

REACTIONS (1)
  - Vertigo positional [Recovering/Resolving]

NARRATIVE: CASE EVENT DATE: 20220120
